FAERS Safety Report 15371788 (Version 1)
Quarter: 2018Q3

REPORT INFORMATION
  Report Type: Spontaneous
  Country: US (occurrence: US)
  Receive Date: 20180911
  Receipt Date: 20180911
  Transmission Date: 20181010
  Serious: Yes (Hospitalization)
  Sender: FDA-Public Use
  Company Number: US-LUNDBECK-DKLU2054201

PATIENT
  Age: 1 Year
  Sex: Female

DRUGS (2)
  1. SABRIL [Suspect]
     Active Substance: VIGABATRIN
     Route: 048
     Dates: start: 20180619
  2. SABRIL [Suspect]
     Active Substance: VIGABATRIN
     Indication: CHROMOSOMAL DELETION
     Route: 048
     Dates: start: 20180619

REACTIONS (2)
  - Pulmonary oedema [Unknown]
  - Respiratory tract infection [Unknown]

NARRATIVE: CASE EVENT DATE: 20180830
